FAERS Safety Report 18872643 (Version 1)
Quarter: 2021Q1

REPORT INFORMATION
  Report Type: Spontaneous
  Country: US (occurrence: US)
  Receive Date: 20210209
  Receipt Date: 20210209
  Transmission Date: 20210420
  Serious: Yes (Hospitalization)
  Sender: FDA-Public Use
  Company Number: None

PATIENT
  Sex: Female

DRUGS (4)
  1. ASTRADIOL [Concomitant]
  2. IBUPROFEN. [Concomitant]
     Active Substance: IBUPROFEN
  3. ESCITALOPRAM [Concomitant]
     Active Substance: ESCITALOPRAM OXALATE
  4. HUMIRA [Suspect]
     Active Substance: ADALIMUMAB
     Indication: SARCOIDOSIS
     Route: 058

REACTIONS (2)
  - Intentional dose omission [None]
  - COVID-19 [None]
